FAERS Safety Report 10701042 (Version 2)
Quarter: 2015Q1

REPORT INFORMATION
  Report Type: Report from Study
  Country: BR (occurrence: BR)
  Receive Date: 20150109
  Receipt Date: 20150121
  Transmission Date: 20150721
  Serious: Yes (Hospitalization, Other)
  Sender: FDA-Public Use
  Company Number: PHHY2015BR001866

PATIENT
  Age: 18 Year
  Sex: Male
  Weight: 48 kg

DRUGS (5)
  1. TOBRAMYCIN. [Suspect]
     Active Substance: TOBRAMYCIN
     Indication: CYSTIC FIBROSIS
     Dosage: UNK OT, MONT YES, MONTH NO
     Route: 055
     Dates: start: 2003, end: 2005
  2. CREON [Concomitant]
     Active Substance: PANCRELIPASE AMYLASE\PANCRELIPASE LIPASE\PANCRELIPASE PROTEASE
     Indication: ENZYME SUPPLEMENTATION
     Dosage: UNK OT, QD (IN MEALS)
     Route: 048
     Dates: start: 2005
  3. DORNASE [Concomitant]
     Indication: FLUID IMBALANCE
     Dosage: UNK OT, QD
     Route: 055
     Dates: start: 2007
  4. ZOTEON [Suspect]
     Active Substance: TOBRAMYCIN
     Indication: CYSTIC FIBROSIS
     Dosage: UNK OT, MONTH YES, MONTH NO
     Route: 055
     Dates: start: 201407, end: 201411
  5. AZITROMICINA [Concomitant]
     Active Substance: AZITHROMYCIN DIHYDRATE
     Indication: BRONCHOPNEUMONIA
     Dosage: UNK OT, ALTERNATE DAYS
     Route: 048
     Dates: start: 2004

REACTIONS (5)
  - Increased bronchial secretion [Recovering/Resolving]
  - Pneumothorax [Recovering/Resolving]
  - Dysphonia [Unknown]
  - Pneumonia [Recovering/Resolving]
  - Aphasia [Recovered/Resolved]

NARRATIVE: CASE EVENT DATE: 201408
